FAERS Safety Report 26028828 (Version 1)
Quarter: 2025Q4

REPORT INFORMATION
  Report Type: Spontaneous
  Country: BR (occurrence: BR)
  Receive Date: 20251112
  Receipt Date: 20251112
  Transmission Date: 20260118
  Serious: Yes (Other)
  Sender: BAXTER
  Company Number: BR-BAXTER-2025BAX023796

PATIENT
  Sex: Female

DRUGS (2)
  1. IRON SUCROSE [Suspect]
     Active Substance: IRON SUCROSE
     Dosage: DILUTED WITH SALINE SOLUTION AND ADMINISTERED DROP BY DROP
     Route: 065
     Dates: start: 20251102
  2. SODIUM CHLORIDE [Suspect]
     Active Substance: SODIUM CHLORIDE
     Dosage: SUCROFER DILUTED IN SALINE SOLUTION AND ADMINISTERED DROP BY DROP
     Route: 065
     Dates: start: 20251102

REACTIONS (7)
  - Syncope [Unknown]
  - Nausea [Unknown]
  - Blood pressure decreased [Unknown]
  - Urticaria [Unknown]
  - Hypersensitivity [Unknown]
  - Exposure during pregnancy [Unknown]
  - Product storage error [Unknown]

NARRATIVE: CASE EVENT DATE: 20251103
